FAERS Safety Report 5402275-9 (Version None)
Quarter: 2007Q3

REPORT INFORMATION
  Report Type: 
  Country: None (occurrence: None)
  Receive Date: 20070801
  Receipt Date: 20070725
  Transmission Date: 20080115
  Serious: Yes (Other)
  Sender: FDA-Public Use
  Company Number: GB-AMGEN-US236575

PATIENT
  Age: 47 Year
  Sex: Male
  Weight: 104 kg

DRUGS (9)
  1. ENBREL [Suspect]
     Indication: DRUG USE FOR UNKNOWN INDICATION
     Route: 058
     Dates: start: 20050701
  2. GLICLAZIDE [Concomitant]
     Dosage: UNKNOWN
     Route: 048
  3. MELOXICAM [Concomitant]
     Dosage: UNKNOWN
     Route: 048
  4. XATRAL [Concomitant]
     Dosage: UNKNOWN
     Route: 048
  5. PREDNISOLONE [Concomitant]
     Dosage: UNKNOWN
     Route: 048
  6. PANTOPRAZOLE SODIUM [Concomitant]
     Dosage: UNKNOWN
     Route: 048
  7. SIMVASTATIN [Concomitant]
     Dosage: UNKNOWN
     Route: 048
  8. FELODIPINE [Concomitant]
     Dosage: UNKNOWN
     Route: 048
  9. METHOTREXATE SODIUM [Concomitant]
     Dosage: UNKNOWN
     Route: 058

REACTIONS (1)
  - LOWER RESPIRATORY TRACT INFECTION [None]
